FAERS Safety Report 24830418 (Version 5)
Quarter: 2025Q1

REPORT INFORMATION
  Report Type: Report from Study
  Country: US (occurrence: US)
  Receive Date: 20250110
  Receipt Date: 20250319
  Transmission Date: 20250408
  Serious: Yes (Other)
  Sender: ABBVIE
  Company Number: US-ABBVIE-6072461

PATIENT
  Age: 42 Year
  Sex: Male
  Weight: 58 kg

DRUGS (6)
  1. HUMIRA [Suspect]
     Active Substance: ADALIMUMAB
     Indication: Colitis ulcerative
     Route: 058
     Dates: start: 20230401, end: 20230501
  2. HUMIRA [Suspect]
     Active Substance: ADALIMUMAB
     Route: 058
     Dates: start: 20231114
  3. XANAX [Suspect]
     Active Substance: ALPRAZOLAM
     Indication: Product used for unknown indication
     Route: 065
  4. HYRIMOZ [Suspect]
     Active Substance: ADALIMUMAB-ADAZ
     Indication: Product used for unknown indication
     Route: 065
  5. PREDNISONE [Concomitant]
     Active Substance: PREDNISONE
     Indication: Product used for unknown indication
     Route: 065
  6. BUSPAR [Concomitant]
     Active Substance: BUSPIRONE HYDROCHLORIDE
     Indication: Product used for unknown indication

REACTIONS (22)
  - Myocardial rupture [Unknown]
  - Loss of consciousness [Unknown]
  - COVID-19 [Recovered/Resolved]
  - Cardiac murmur [Unknown]
  - Dizziness [Unknown]
  - Anxiety disorder [Recovering/Resolving]
  - Mania [Recovering/Resolving]
  - Mobility decreased [Unknown]
  - Heart valve operation [Recovering/Resolving]
  - Sarcoidosis [Recovered/Resolved]
  - Orthostatic hypotension [Unknown]
  - Migraine [Recovering/Resolving]
  - Anxiety [Not Recovered/Not Resolved]
  - Depression [Not Recovered/Not Resolved]
  - Colitis ulcerative [Unknown]
  - Syncope [Unknown]
  - Concussion [Recovered/Resolved]
  - Nasopharyngitis [Recovered/Resolved]
  - Immunodeficiency [Unknown]
  - Stress [Unknown]
  - Fall [Recovered/Resolved]
  - Concussion [Unknown]

NARRATIVE: CASE EVENT DATE: 20240101
